FAERS Safety Report 18612916 (Version 1)
Quarter: 2020Q4

REPORT INFORMATION
  Report Type: Spontaneous
  Country: US (occurrence: US)
  Receive Date: 20201214
  Receipt Date: 20201214
  Transmission Date: 20210114
  Serious: No
  Sender: FDA-Public Use
  Company Number: US-ABBVIE-20K-163-3267087-00

PATIENT
  Age: 84 Year
  Sex: Female
  Weight: 47.67 kg

DRUGS (1)
  1. IMBRUVICA [Suspect]
     Active Substance: IBRUTINIB
     Indication: CHRONIC LYMPHOCYTIC LEUKAEMIA
     Route: 048
     Dates: start: 2015

REACTIONS (3)
  - Wrist fracture [Not Recovered/Not Resolved]
  - Product packaging difficult to open [Unknown]
  - Fall [Unknown]

NARRATIVE: CASE EVENT DATE: 20200109
